FAERS Safety Report 6932461 (Version 3)
Quarter: 2013Q1

REPORT INFORMATION
  Report Type: Spontaneous
  Country: GB (occurrence: GB)
  Receive Date: 20090310
  Receipt Date: 20130317
  Transmission Date: 20140127
  Serious: Yes (Other)
  Sender: FDA-Public Use
  Company Number: GB-TEVA-186956ISR

PATIENT
  Age: 55 Year
  Sex: Female

DRUGS (2)
  1. ATENOLOL [Suspect]
  2. NAPROXEN [Suspect]

REACTIONS (2)
  - Lichenoid keratosis [Not Recovered/Not Resolved]
  - Stomatitis [Not Recovered/Not Resolved]
